FAERS Safety Report 4550135-8 (Version None)
Quarter: 2005Q1

REPORT INFORMATION
  Report Type: 
  Country: None (occurrence: None)
  Receive Date: 20050110
  Receipt Date: 20041227
  Transmission Date: 20050727
  Serious: Yes (Other)
  Sender: FDA-Public Use
  Company Number: 200416271BCC

PATIENT
  Sex: Male

DRUGS (1)
  1. ALEVE [Suspect]
     Dosage: PRN, ORAL
     Route: 048

REACTIONS (2)
  - CARDIAC STRESS TEST ABNORMAL [None]
  - HEART RATE INCREASED [None]
